FAERS Safety Report 8517854-X (Version None)
Quarter: 2012Q3

REPORT INFORMATION
  Report Type: 
  Country: None (occurrence: None)
  Receive Date: 20120718
  Receipt Date: 20110621
  Transmission Date: 20120928
  Serious: No
  Sender: FDA-Public Use
  Company Number: US-BRISTOL-MYERS SQUIBB COMPANY-15846074

PATIENT
  Age: 69 Year
  Sex: Male
  Weight: 136 kg

DRUGS (1)
  1. COUMADIN [Suspect]
     Indication: PULMONARY EMBOLISM
     Route: 048
     Dates: start: 20110301

REACTIONS (1)
  - PLANTAR FASCIITIS [None]
